FAERS Safety Report 9222663 (Version 2)
Quarter: 2013Q3

REPORT INFORMATION
  Report Type: Spontaneous
  Country: US (occurrence: None)
  Receive Date: 20120914
  Receipt Date: 20130916
  Transmission Date: 20140515
  Serious: Yes (Other)
  Sender: FDA-Public Use
  Company Number: JPI-P-021733

PATIENT
  Sex: Female
  Weight: 97.52 kg

DRUGS (20)
  1. XYREM [Suspect]
     Indication: NARCOLEPSY
     Dosage: (3 GM,PER NIGHT TOTAL),ORAL
     Route: 048
     Dates: end: 201205
  2. FLUTICASONE PROPIONATE [Concomitant]
  3. PROAIR [Concomitant]
  4. LISINOPRIL [Concomitant]
  5. GABAPENTIN [Concomitant]
  6. PRAVASTATIN [Concomitant]
  7. NIACIN [Concomitant]
  8. ACETYLSALICYLIC ACID [Concomitant]
  9. VITAMIN D [Concomitant]
  10. ARMODAFINIL [Concomitant]
  11. METHYLPHENIDATE SR [Concomitant]
  12. CETIRIZINE [Concomitant]
  13. OMEPRAZOLE [Concomitant]
  14. ESTRADIOL [Concomitant]
  15. ETODOLAC (TABLETS) [Concomitant]
  16. INSULIN GLARGINE [Concomitant]
  17. METFORMIN [Concomitant]
  18. ACARBOSE [Concomitant]
  19. TRAMADOL [Concomitant]
  20. VENLAFAXINE HYDROCHLORIDE EXTENDED-RELEASE [Concomitant]

REACTIONS (3)
  - Apnoea [None]
  - Hyponatraemia [None]
  - Oedema peripheral [None]
